FAERS Safety Report 21813960 (Version 1)
Quarter: 2023Q1

REPORT INFORMATION
  Report Type: Spontaneous
  Country: NL (occurrence: NL)
  Receive Date: 20230104
  Receipt Date: 20230104
  Transmission Date: 20230418
  Serious: Yes (Other)
  Sender: FDA-Public Use
  Company Number: None

PATIENT
  Sex: Male
  Weight: 85 kg

DRUGS (1)
  1. ADALIMUMAB [Suspect]
     Active Substance: ADALIMUMAB
     Indication: Psoriasis
     Dosage: 1X IN 2 WEKEN 2 INJECTIES/THERAPY CESSATION DATE AT LEAST: 2022/EVENT ONSET DATE AT LEAST SHOULD ...
     Route: 058
     Dates: start: 20220805

REACTIONS (1)
  - Toxic skin eruption [Recovered/Resolved]
